FAERS Safety Report 5708787-2 (Version None)
Quarter: 2008Q2

REPORT INFORMATION
  Report Type: 
  Country: None (occurrence: None)
  Receive Date: 20080417
  Receipt Date: 20080411
  Transmission Date: 20081010
  Serious: Yes (Life-Threatening, Hospitalization)
  Sender: FDA-Public Use
  Company Number: JP-MERCK-0804USA00944

PATIENT
  Age: 70 Year
  Sex: Male

DRUGS (8)
  1. HYZAAR [Suspect]
     Route: 048
     Dates: start: 20080318, end: 20080330
  2. AMIODARONE HYDROCHLORIDE [Suspect]
     Route: 048
     Dates: start: 20080318, end: 20080330
  3. EPLERENONE [Suspect]
     Route: 048
     Dates: start: 20080310, end: 20080330
  4. PLETAL [Suspect]
     Route: 048
     Dates: start: 20080318, end: 20080330
  5. ALOSITOL [Suspect]
     Route: 048
     Dates: start: 20080318, end: 20080330
  6. LASIX [Suspect]
     Route: 048
     Dates: start: 20080318, end: 20080330
  7. ARTIST [Suspect]
     Route: 048
     Dates: start: 20080318, end: 20080330
  8. WARFARIN [Suspect]
     Route: 048
     Dates: start: 20080318, end: 20080330

REACTIONS (4)
  - COMA HEPATIC [None]
  - HAEMODIALYSIS [None]
  - HEPATITIS FULMINANT [None]
  - RENAL FAILURE ACUTE [None]
